FAERS Safety Report 6339552-3 (Version None)
Quarter: 2009Q3

REPORT INFORMATION
  Report Type: 
  Country: None (occurrence: None)
  Receive Date: 20090827
  Receipt Date: 20090713
  Transmission Date: 20100115
  Serious: No
  Sender: FDA-Public Use
  Company Number: 001253

PATIENT
  Age: 47 Year
  Sex: Female

DRUGS (1)
  1. LACOSAMIDE [Suspect]
     Dosage: (50 MG BID ORAL)
     Route: 048

REACTIONS (1)
  - RASH [None]
